FAERS Safety Report 14243738 (Version 1)
Quarter: 2017Q4

REPORT INFORMATION
  Report Type: Report from Study
  Country: MX (occurrence: MX)
  Receive Date: 20171201
  Receipt Date: 20171201
  Transmission Date: 20180321
  Serious: Yes (Hospitalization)
  Sender: FDA-Public Use
  Company Number: MX-GLAXOSMITHKLINE-MX2015028226

PATIENT
  Age: 56 Year
  Sex: Female
  Weight: 60 kg

DRUGS (7)
  1. ITRACONAZOLE. [Concomitant]
     Active Substance: ITRACONAZOLE
     Indication: PNEUMONIA
     Dosage: 200 MG, SINGLE
     Route: 048
     Dates: start: 20150225
  2. LEVOFLOXACIN. [Concomitant]
     Active Substance: LEVOFLOXACIN
     Indication: PNEUMONIA
     Dosage: 500 MG, QD
     Route: 042
     Dates: start: 20150225, end: 20150303
  3. ACENOCOUMAROL [Concomitant]
     Active Substance: ACENOCOUMAROL
     Indication: THROMBOPHLEBITIS
     Dosage: 1 MG, QD
     Route: 048
     Dates: start: 20141010, end: 20141106
  4. BELIMUMAB [Suspect]
     Active Substance: BELIMUMAB
     Indication: LUPUS NEPHRITIS
     Dosage: 10 MG/KG, CYC
     Route: 042
     Dates: start: 20140910, end: 20150203
  5. MYCOPHENOLATE [Concomitant]
     Active Substance: MYCOPHENOLIC ACID
     Indication: LUPUS NEPHRITIS
     Dosage: 500 MG, BID
     Route: 048
     Dates: start: 20141018
  6. OMEPRAZOLE. [Concomitant]
     Active Substance: OMEPRAZOLE
     Indication: GASTRITIS
     Dosage: 40 MG, BID
     Route: 042
     Dates: start: 20150225
  7. FUROSEMIDE. [Concomitant]
     Active Substance: FUROSEMIDE
     Indication: SYSTEMIC LUPUS ERYTHEMATOSUS
     Dosage: 20 MG, TID
     Route: 042
     Dates: start: 20150225

REACTIONS (1)
  - Varicella zoster virus infection [Recovered/Resolved with Sequelae]

NARRATIVE: CASE EVENT DATE: 20150225
